FAERS Safety Report 10418620 (Version 1)
Quarter: 2014Q3

REPORT INFORMATION
  Report Type: Spontaneous
  Country: JP (occurrence: JP)
  Receive Date: 20140829
  Receipt Date: 20140829
  Transmission Date: 20150326
  Serious: Yes (Other)
  Sender: FDA-Public Use
  Company Number: PHHY2014JP106385

PATIENT
  Age: 55 Year
  Sex: Male

DRUGS (10)
  1. ANAESTHETICS [Concomitant]
     Active Substance: UNSPECIFIED INGREDIENT
  2. CLINDAMYCIN [Suspect]
     Active Substance: CLINDAMYCIN\CLINDAMYCIN PHOSPHATE
     Indication: BACK PAIN
  3. LINEZOLID. [Suspect]
     Active Substance: LINEZOLID
     Indication: SPINAL CORD INFECTION
  4. CEFOTIAM [Suspect]
     Active Substance: CEFOTIAM
     Indication: SPINAL CORD INFECTION
  5. LINEZOLID. [Suspect]
     Active Substance: LINEZOLID
     Indication: STAPHYLOCOCCAL INFECTION
  6. CLINDAMYCIN [Suspect]
     Active Substance: CLINDAMYCIN\CLINDAMYCIN PHOSPHATE
     Indication: SPINAL CORD INFECTION
  7. LINEZOLID. [Suspect]
     Active Substance: LINEZOLID
     Indication: BACK PAIN
  8. GENTAMICIN [Suspect]
     Active Substance: GENTAMICIN
     Indication: BACK PAIN
  9. GENTAMICIN [Suspect]
     Active Substance: GENTAMICIN
     Indication: SPINAL CORD INFECTION
  10. CEFOTIAM [Suspect]
     Active Substance: CEFOTIAM
     Indication: BACK PAIN

REACTIONS (3)
  - Spinal cord infection [Recovered/Resolved]
  - Kyphosis postoperative [Unknown]
  - Fungal infection [Recovered/Resolved]
